FAERS Safety Report 8880783 (Version 2)
Quarter: 2012Q4

REPORT INFORMATION
  Report Type: 
  Country: SG (occurrence: SG)
  Receive Date: 20121101
  Receipt Date: 20121115
  Transmission Date: 20130627
  Serious: Yes (Death, Other)
  Sender: FDA-Public Use
  Company Number: SG-BAXTER-2012BAX020936

PATIENT

DRUGS (2)
  1. DIANEAL LOW CALCIUM PERITONEAL DIALYSIS SOLUTION WITH DEXTROSE [Suspect]
     Indication: PERITONEAL DIALYSIS
     Route: 033
  2. DIANEAL LOW CALCIUM (2.5 MEQ/L) PD SOLUTION WITH 2.5% DEXTROSE ^BAXTER [Suspect]
     Indication: PERITONEAL DIALYSIS
     Route: 033

REACTIONS (2)
  - Localised infection [Fatal]
  - Peritoneal effluent abnormal [Unknown]
